FAERS Safety Report 19924203 (Version 1)
Quarter: 2021Q4

REPORT INFORMATION
  Report Type: Spontaneous
  Country: US (occurrence: US)
  Receive Date: 20211006
  Receipt Date: 20211006
  Transmission Date: 20220303
  Serious: No
  Sender: FDA-Public Use
  Company Number: None

PATIENT

DRUGS (2)
  1. LISINOPRIL [Suspect]
     Active Substance: LISINOPRIL
  2. FUROSEMIDE [Suspect]
     Active Substance: FUROSEMIDE

REACTIONS (4)
  - Incorrect dose administered [None]
  - Drug monitoring procedure not performed [None]
  - Product prescribing error [None]
  - Hyperkalaemia [None]
